FAERS Safety Report 8492043-6 (Version None)
Quarter: 2012Q2

REPORT INFORMATION
  Report Type: 
  Country: None (occurrence: None)
  Receive Date: 20120619
  Receipt Date: 20120611
  Transmission Date: 20120825
  Serious: Yes (Death)
  Sender: FDA-Public Use
  Company Number: 2012032497

PATIENT
  Age: 81 Year
  Sex: Male

DRUGS (15)
  1. SAVIOSOL (SAVIOSOL) [Concomitant]
  2. BOSMIN /00003902/(EPINEPHRINE HYDROCHLORIDE) [Concomitant]
  3. HYDROCORTISONE SODIUM SUCCINATE [Concomitant]
  4. DOBUPUM (DOBUTAMINE HYDROCHLORIDE) [Concomitant]
  5. INOVAN (DOPANINE HYDROCHLORIDE) [Concomitant]
  6. HANP (CARPERITIDE) [Concomitant]
  7. CALCIUM GLUCONATE [Concomitant]
  8. XYLONOR NOR-ADRENALIN (INDOLOR /00216001/) [Concomitant]
  9. ALBUMINAR-5 [Suspect]
     Indication: HYPOVOLAEMIA
     Dosage: 250 ML DAILY DOSE; 12.5G/250 ML INTRAVENOUS (NOT OTHERWISE  - INTRAVENOUS (NOT OTHERWISE SPECIFIED)
     Route: 042
     Dates: start: 20120411
  10. ALBUMINAR-5 [Suspect]
     Indication: HYPOALBUMINAEMIA
     Dosage: 250 ML DAILY DOSE; 12.5G/250 ML INTRAVENOUS (NOT OTHERWISE  - INTRAVENOUS (NOT OTHERWISE SPECIFIED)
     Route: 042
     Dates: start: 20120411
  11. NEOSYNESIN /00116302/ (PHENYLEPHRINE HYDROCHLORIDE) [Concomitant]
  12. HESPANDER  /01921901/ (HESPANDER /01921901/) [Concomitant]
  13. ATROPINE SULFATE [Concomitant]
  14. DORMICUM /00036201/(NITRAZEPAM) [Concomitant]
  15. ROCURONIUM BROMIDE [Concomitant]

REACTIONS (7)
  - CIRCULATORY COLLAPSE [None]
  - ANAPHYLACTIC SHOCK [None]
  - DRUG HYPERSENSITIVITY [None]
  - CARDIAC ARREST [None]
  - HYPOTENSION [None]
  - HYPOXIA [None]
  - ACUTE RESPIRATORY DISTRESS SYNDROME [None]
